FAERS Safety Report 5597034-0 (Version None)
Quarter: 2008Q1

REPORT INFORMATION
  Report Type: 
  Country: None (occurrence: None)
  Receive Date: 20080121
  Receipt Date: 20071219
  Transmission Date: 20080703
  Serious: No
  Sender: FDA-Public Use
  Company Number: PR-BAYER-200716813NA

PATIENT
  Age: 37 Year
  Sex: Female

DRUGS (4)
  1. AVELOX [Suspect]
     Indication: DRUG USE FOR UNKNOWN INDICATION
     Dosage: TOTAL DAILY DOSE: 400 MG  UNIT DOSE: 400 MG
     Route: 048
     Dates: start: 20071119, end: 20071126
  2. PHENERGAN HCL [Concomitant]
  3. CELESTONE TAB [Concomitant]
  4. ALBUTEROL [Concomitant]

REACTIONS (6)
  - COLD SWEAT [None]
  - DIARRHOEA [None]
  - HYPERSENSITIVITY [None]
  - NAUSEA [None]
  - PRURITUS [None]
  - RASH [None]
